FAERS Safety Report 5537197-6 (Version None)
Quarter: 2007Q4

REPORT INFORMATION
  Report Type: 
  Country: None (occurrence: None)
  Receive Date: 20071207
  Receipt Date: 20071126
  Transmission Date: 20080405
  Serious: Yes (Other)
  Sender: FDA-Public Use
  Company Number: US-JNJFOC-20070904297

PATIENT
  Sex: Female
  Weight: 66.68 kg

DRUGS (4)
  1. REMICADE [Suspect]
     Dosage: 4 INFUSIONS ON UNSPECIIFED DATES.
     Route: 042
  2. REMICADE [Suspect]
     Route: 042
  3. REMICADE [Suspect]
     Route: 042
  4. REMICADE [Suspect]
     Indication: COLITIS ULCERATIVE
     Route: 042

REACTIONS (2)
  - CHOLANGITIS SCLEROSING [None]
  - HEPATIC ENZYME INCREASED [None]
